FAERS Safety Report 9472356 (Version 3)
Quarter: 2014Q2

REPORT INFORMATION
  Report Type: Spontaneous
  Country: US (occurrence: US)
  Receive Date: 20130823
  Receipt Date: 20140617
  Transmission Date: 20141212
  Serious: Yes (Hospitalization, Other)
  Sender: FDA-Public Use
  Company Number: US-009507513-1308USA007506

PATIENT
  Sex: Female

DRUGS (1)
  1. NUVARING [Suspect]
     Indication: CONTRACEPTION
     Dosage: UNK
     Route: 067
     Dates: start: 20090127, end: 20101029

REACTIONS (6)
  - Hyperglycaemia [Unknown]
  - Pulmonary embolism [Unknown]
  - Headache [Recovered/Resolved]
  - Asthma [Unknown]
  - Adverse drug reaction [Unknown]
  - Pruritus [Unknown]
